FAERS Safety Report 21166648 (Version 1)
Quarter: 2022Q3

REPORT INFORMATION
  Report Type: Spontaneous
  Country: UM (occurrence: None)
  Receive Date: 20220803
  Receipt Date: 20220803
  Transmission Date: 20221026
  Serious: Yes (Life-Threatening)
  Sender: FDA-Public Use
  Company Number: UM-ROCHE-3150919

PATIENT
  Sex: Female

DRUGS (1)
  1. OCREVUS [Suspect]
     Active Substance: OCRELIZUMAB
     Indication: Relapsing-remitting multiple sclerosis
     Dosage: LAST OCR INFUSION WAS FEBRUARY 2022.
     Route: 065
     Dates: start: 202002

REACTIONS (1)
  - Papillary thyroid cancer [Unknown]
